FAERS Safety Report 13144385 (Version 1)
Quarter: 2017Q1

REPORT INFORMATION
  Report Type: Spontaneous
  Country: IT (occurrence: IT)
  Receive Date: 20170124
  Receipt Date: 20170124
  Transmission Date: 20170428
  Serious: Yes (Other)
  Sender: FDA-Public Use
  Company Number: IT-PFIZER INC-2017023617

PATIENT
  Age: 81 Year
  Sex: Male

DRUGS (4)
  1. SUNITINIB MALATE. [Suspect]
     Active Substance: SUNITINIB MALATE
     Indication: CLEAR CELL RENAL CELL CARCINOMA
     Dosage: 50 MG, DAILY (4 WEEKS ON/2 OFF)
     Dates: start: 200909, end: 201206
  2. SUNITINIB MALATE. [Suspect]
     Active Substance: SUNITINIB MALATE
     Dosage: UNK
     Dates: start: 201212, end: 201408
  3. SUNITINIB MALATE. [Suspect]
     Active Substance: SUNITINIB MALATE
     Dosage: 37.5 MG, DAILY (2ON/1 OFF)
     Dates: start: 201508, end: 201601
  4. SUNITINIB MALATE. [Suspect]
     Active Substance: SUNITINIB MALATE
     Dosage: 50 MG, DAILY (2 WEEKS ON/1 OFF)
     Dates: start: 201408, end: 201508

REACTIONS (11)
  - Asthenia [Unknown]
  - Thrombocytopenia [Recovered/Resolved]
  - Gastrointestinal toxicity [Unknown]
  - Thyroid disorder [Not Recovered/Not Resolved]
  - Blood thyroid stimulating hormone increased [Unknown]
  - Bone marrow toxicity [Unknown]
  - Neoplasm progression [Unknown]
  - Toxicity to various agents [Unknown]
  - Abdominal pain [Recovering/Resolving]
  - Diarrhoea [Recovering/Resolving]
  - Neutropenia [Recovered/Resolved]

NARRATIVE: CASE EVENT DATE: 201103
